FAERS Safety Report 5401254-5 (Version None)
Quarter: 2007Q3

REPORT INFORMATION
  Report Type: 
  Country: None (occurrence: None)
  Receive Date: 20070731
  Receipt Date: 20070725
  Transmission Date: 20080115
  Serious: Yes (Other)
  Sender: FDA-Public Use
  Company Number: JP-AVENTIS-200711456JP

PATIENT
  Age: 12 Year
  Sex: Female
  Weight: 47 kg

DRUGS (5)
  1. ALLEGRA [Suspect]
     Indication: DERMATITIS ATOPIC
     Route: 048
     Dates: start: 20070419, end: 20070509
  2. AZEPTIN                            /00884001/ [Concomitant]
     Indication: DERMATITIS ATOPIC
     Dosage: DOSE: 0.5 MG X 1 + 1.0 MG X 1
     Route: 048
     Dates: start: 20060420, end: 20070418
  3. LOCOID [Concomitant]
     Indication: DERMATITIS ATOPIC
     Dates: start: 20070422
  4. DERMOVATE [Concomitant]
     Indication: DERMATITIS ATOPIC
  5. VASELINE                           /01007601/ [Concomitant]
     Indication: DERMATITIS ATOPIC
     Dates: start: 20070422

REACTIONS (3)
  - CONJUNCTIVITIS [None]
  - DRUG ERUPTION [None]
  - ERYTHEMA MULTIFORME [None]
